FAERS Safety Report 7282455-0 (Version None)
Quarter: 2011Q1

REPORT INFORMATION
  Report Type: 
  Country: None (occurrence: None)
  Receive Date: 20110125
  Receipt Date: 20110110
  Transmission Date: 20110831
  Serious: Yes (Death)
  Sender: FDA-Public Use
  Company Number: 025509

PATIENT
  Sex: Male

DRUGS (6)
  1. ASS (NOT SPECIFIED) [Suspect]
  2. ACETAMINOPHEN- PROPOXYPHENE HCL TAB [Suspect]
  3. ALPRAZOLAM [Suspect]
  4. MELOXICAM [Suspect]
  5. AMITRIPTYLINE [Suspect]
  6. LISINOPRIL [Suspect]

REACTIONS (1)
  - COMPLETED SUICIDE [None]
